FAERS Safety Report 24617063 (Version 1)
Quarter: 2024Q4

REPORT INFORMATION
  Report Type: Spontaneous
  Country: GB (occurrence: GB)
  Receive Date: 20241114
  Receipt Date: 20241114
  Transmission Date: 20250114
  Serious: Yes (Other)
  Sender: DEXCEL
  Company Number: None

PATIENT
  Age: 61 Year
  Sex: Male
  Weight: 101 kg

DRUGS (11)
  1. ISOSORBIDE MONONITRATE [Suspect]
     Active Substance: ISOSORBIDE MONONITRATE
     Indication: Chest pain
     Dates: start: 20240730, end: 20240803
  2. RAMIPRIL [Concomitant]
     Active Substance: RAMIPRIL
  3. LevothiroxineLEVOTHYROXINE (Specific Substance SUB532) [Concomitant]
  4. ATORVASTATIN [Concomitant]
     Active Substance: ATORVASTATIN
  5. PROPANTHELINE BROMIDE [Concomitant]
     Active Substance: PROPANTHELINE BROMIDE
  6. METFORMIN HYDROCHLORIDE [Concomitant]
     Active Substance: METFORMIN HYDROCHLORIDE
  7. Dispersable AspirinASPIRIN (Specific Substance SUB217) [Concomitant]
  8. Diltiazem hydrochloride MRDILTIAZEM HYDROCHLORIDE (Specific Substan... [Concomitant]
  9. SERETIDE [Concomitant]
     Active Substance: FLUTICASONE PROPIONATE\SALMETEROL XINAFOATE
  10. BRICANYL inhaler [Concomitant]
  11. ACETAMINOPHEN [Concomitant]
     Active Substance: ACETAMINOPHEN

REACTIONS (2)
  - Neck pain [Recovered/Resolved]
  - Heart rate irregular [Recovered/Resolved]

NARRATIVE: CASE EVENT DATE: 20240730
